FAERS Safety Report 9351819 (Version 1)
Quarter: 2013Q2

REPORT INFORMATION
  Report Type: Report from Study
  Country: US (occurrence: US)
  Receive Date: 20130617
  Receipt Date: 20130617
  Transmission Date: 20140414
  Serious: Yes (Other)
  Sender: FDA-Public Use
  Company Number: US-ABBOTT-13P-163-1101555-00

PATIENT
  Age: 44 Year
  Sex: Male

DRUGS (7)
  1. HUMIRA [Suspect]
     Indication: BEHCET^S SYNDROME
     Dates: start: 2011
  2. HUMIRA [Suspect]
  3. HYDROCHLORAQUINE [Concomitant]
     Indication: BEHCET^S SYNDROME
  4. OMEPRAZOLE [Concomitant]
     Indication: GASTROOESOPHAGEAL REFLUX DISEASE
  5. LISINOPRIL [Concomitant]
     Indication: HYPERTENSION
  6. SIMVASTATIN [Concomitant]
     Indication: HYPERLIPIDAEMIA
  7. ASPIRIN [Concomitant]
     Indication: CARDIAC DISORDER

REACTIONS (4)
  - Behcet^s syndrome [Recovered/Resolved with Sequelae]
  - Injection site haemorrhage [Recovered/Resolved]
  - Device malfunction [Recovered/Resolved]
  - Amaurosis [Unknown]
